FAERS Safety Report 5808946-4 (Version None)
Quarter: 2008Q3

REPORT INFORMATION
  Report Type: 
  Country: None (occurrence: None)
  Receive Date: 20080710
  Receipt Date: 20080710
  Transmission Date: 20090109
  Serious: No
  Sender: FDA-Public Use
  Company Number: None

PATIENT
  Age: 83 Year
  Sex: Female
  Weight: 45.3597 kg

DRUGS (1)
  1. ZANAFLEX [Suspect]

REACTIONS (1)
  - THERAPEUTIC RESPONSE UNEXPECTED [None]
